FAERS Safety Report 9948400 (Version 2)
Quarter: 2015Q2

REPORT INFORMATION
  Report Type: Spontaneous
  Country: US (occurrence: None)
  Receive Date: 20140122
  Receipt Date: 20150420
  Transmission Date: 20150821
  Serious: Yes (Other)
  Sender: FDA-Public Use
  Company Number: PHEH2013US024237

PATIENT
  Age: 8 Year
  Sex: Male
  Weight: 21 kg

DRUGS (14)
  1. FLONASE/FLUTICASONE PROPIONATE (FLUTICASONE PROPIONATE) [Concomitant]
  2. ALBUTEROL (SALBUTAMOL) [Concomitant]
     Active Substance: ALBUTEROL
  3. LANTUS [Concomitant]
     Active Substance: INSULIN GLARGINE
  4. VITAMIN D (ERGOCALCIFEROL) [Concomitant]
     Active Substance: ERGOCALCIFEROL
  5. CREON [Concomitant]
     Active Substance: PANCRELIPASE AMYLASE\PANCRELIPASE LIPASE\PANCRELIPASE PROTEASE
  6. PEDIASURE (CARBOHYDRATES NOS, FATS NOS, MINERALS NOS, PROTEIN, VITAMIN NOS) [Concomitant]
  7. CAPTON/CAPTOPRIN (CAPROPRIL) [Concomitant]
  8. PULMOZYME (DORNASE ALFA) [Concomitant]
  9. FLOVENT [Concomitant]
     Active Substance: FLUTICASONE PROPIONATE
  10. TOBI PODHALER [Suspect]
     Active Substance: TOBRAMYCIN
     Indication: CYSTIC FIBROSIS
     Dosage: BID EVERY OTHER MONTH
     Route: 055
     Dates: start: 20131101, end: 20131113
  11. PERIACTIN (CYPROHEPTADINE HYDROCHLORIDE) [Concomitant]
  12. PULMICORT TURBUHALER [Concomitant]
     Active Substance: BUDESONIDE
  13. TOBI PODHALER [Suspect]
     Active Substance: TOBRAMYCIN
     Indication: PSEUDOMONAS INFECTION
     Dosage: BID EVERY OTHER MONTH
     Route: 055
     Dates: start: 20131101, end: 20131113
  14. AQUADEKS (ASCORBIC ACID, BETACAROTENE, BIOTIN, CALCIUM PANTOTHENATE, COLECALCIFEROL, NICOTINAMIDE, PHYTOMENADIONE, PYRIDOXINE HYDROCHLORIDE, RETINOL, PALMITATE, RIBOFLAVIN, SELENOMETHIONINE, SODIUM ASCORBATE, THIAMINE HYDROCHLORIDE, TOCOPHEROL, COCOPHEROLS MIXED, UBIDECARENONE, ZINC GLUCONATE) [Concomitant]

REACTIONS (5)
  - Pyrexia [None]
  - Dizziness [None]
  - Cough [None]
  - Dysgeusia [None]
  - Product quality issue [None]

NARRATIVE: CASE EVENT DATE: 20131113
